FAERS Safety Report 14067467 (Version 1)
Quarter: 2017Q4

REPORT INFORMATION
  Report Type: Spontaneous
  Country: US (occurrence: US)
  Receive Date: 20171008
  Receipt Date: 20171008
  Transmission Date: 20180321
  Serious: Yes (Disabling)
  Sender: FDA-Public Use
  Company Number: None

PATIENT
  Sex: Male
  Weight: 19.35 kg

DRUGS (1)
  1. MIRALAX [Suspect]
     Active Substance: POLYETHYLENE GLYCOL 3350
     Indication: CONSTIPATION
     Route: 048
     Dates: end: 20171003

REACTIONS (5)
  - Sensory disturbance [None]
  - Tic [None]
  - Abnormal behaviour [None]
  - Eating disorder [None]
  - Obsessive-compulsive disorder [None]

NARRATIVE: CASE EVENT DATE: 20170927
